FAERS Safety Report 20512017 (Version 3)
Quarter: 2022Q1

REPORT INFORMATION
  Report Type: Spontaneous
  Country: JP (occurrence: JP)
  Receive Date: 20220224
  Receipt Date: 20220311
  Transmission Date: 20220423
  Serious: Yes (Death, Other)
  Sender: FDA-Public Use
  Company Number: JP-GLAXOSMITHKLINE-JP2022JPN030732

PATIENT
  Age: 89 Year
  Sex: Female

DRUGS (10)
  1. SOTROVIMAB [Suspect]
     Active Substance: SOTROVIMAB
     Indication: COVID-19
     Dosage: 500 MG/100 ML/30 MIN, QD
     Dates: start: 20220211, end: 20220211
  2. ELIQUIS [Concomitant]
     Active Substance: APIXABAN
     Indication: Cerebral infarction
     Dosage: 5 MG PER DAY
     Dates: start: 20220211
  3. VASOLAN TABLET [Concomitant]
     Indication: Atrial fibrillation
     Dosage: 80 MG PER DAY
     Dates: start: 20220211
  4. TULOBUTEROL TAPE [Concomitant]
     Dosage: UNK
     Dates: start: 20220211
  5. ARTFED [Concomitant]
     Dosage: 1000 ML PER DAY
     Dates: start: 20220211
  6. SODIUM CHLORIDE [Concomitant]
     Active Substance: SODIUM CHLORIDE
     Indication: Hyponatraemia
     Dosage: 40 ML PER DAY
     Dates: start: 20220211
  7. MINOCYCLINE HYDROCHLORIDE [Concomitant]
     Active Substance: MINOCYCLINE HYDROCHLORIDE
     Indication: Bronchitis
     Dosage: 200 MG
     Dates: start: 20220214
  8. MINOCYCLINE HYDROCHLORIDE [Concomitant]
     Active Substance: MINOCYCLINE HYDROCHLORIDE
     Indication: Urinary tract infection
  9. ISOTONIC SODIUM CHLORIDE SOLUTION [Concomitant]
     Active Substance: SODIUM CHLORIDE
     Dosage: 200 ML
  10. FLUMARIN (JAPAN) [Concomitant]
     Dosage: UNK

REACTIONS (11)
  - Cerebral infarction [Fatal]
  - Disease progression [Fatal]
  - Cardio-respiratory arrest [Unknown]
  - Pyrexia [Unknown]
  - Urine abnormality [Unknown]
  - Joint dislocation [Unknown]
  - Glossoptosis [Unknown]
  - Urine output decreased [Unknown]
  - Wheezing [Unknown]
  - Mouth breathing [Unknown]
  - Drug ineffective [Unknown]

NARRATIVE: CASE EVENT DATE: 20220217
